FAERS Safety Report 24400518 (Version 1)
Quarter: 2024Q4

REPORT INFORMATION
  Report Type: Spontaneous
  Country: US (occurrence: US)
  Receive Date: 20241005
  Receipt Date: 20241005
  Transmission Date: 20250115
  Serious: No
  Sender: CSL BEHRING
  Company Number: US-BEH-2024179508

PATIENT
  Age: 42 Year
  Sex: Female

DRUGS (5)
  1. HUMATE-P [Suspect]
     Active Substance: HUMAN COAGULATION FACTOR VIII/VON WILLEBRAND FACTOR COMPLEX
     Indication: Von Willebrand^s disease
     Dosage: 3340 RCOF UNITS PRN (STRENGTH: 2400)
     Route: 042
     Dates: start: 202404
  2. HUMATE-P [Suspect]
     Active Substance: HUMAN COAGULATION FACTOR VIII/VON WILLEBRAND FACTOR COMPLEX
     Dosage: 3340 RCOF UNITS PRN(STRENGTH: 600)
     Route: 042
     Dates: start: 202404
  3. HUMATE-P [Suspect]
     Active Substance: HUMAN COAGULATION FACTOR VIII/VON WILLEBRAND FACTOR COMPLEX
     Dosage: 1670 RCOF UNITS PRN(STRENGTH: 600)
     Route: 042
     Dates: start: 202404
  4. HUMATE-P [Suspect]
     Active Substance: HUMAN COAGULATION FACTOR VIII/VON WILLEBRAND FACTOR COMPLEX
     Dosage: 1670 RCOF UNITS PRN(STRENGTH: 1200)
     Route: 042
     Dates: start: 202404
  5. HUMATE-P [Suspect]
     Active Substance: HUMAN COAGULATION FACTOR VIII/VON WILLEBRAND FACTOR COMPLEX
     Dosage: 3340 RCOF UNITS PRN(STRENGTH: 1200)
     Route: 042
     Dates: start: 202404

REACTIONS (2)
  - Injury [Unknown]
  - Haemorrhage [Recovered/Resolved]

NARRATIVE: CASE EVENT DATE: 20240912
